FAERS Safety Report 6375858-X (Version None)
Quarter: 2009Q3

REPORT INFORMATION
  Report Type: 
  Country: None (occurrence: None)
  Receive Date: 20090924
  Receipt Date: 20090914
  Transmission Date: 20100115
  Serious: Yes (Death)
  Sender: FDA-Public Use
  Company Number: PH-BAXTER-2009BH014223

PATIENT
  Age: 45 Year
  Sex: Female

DRUGS (2)
  1. DIANEAL [Suspect]
     Indication: RENAL FAILURE CHRONIC
     Route: 033
     Dates: start: 20090702
  2. DIANEAL [Suspect]
     Route: 033
     Dates: start: 20090702

REACTIONS (1)
  - DEATH [None]
